FAERS Safety Report 18706659 (Version 1)
Quarter: 2021Q1

REPORT INFORMATION
  Report Type: Spontaneous
  Country: US (occurrence: US)
  Receive Date: 20210106
  Receipt Date: 20210106
  Transmission Date: 20210419
  Serious: Yes (Death, Hospitalization)
  Sender: FDA-Public Use
  Company Number: US-BAYER-2020-287866

PATIENT
  Age: 48 Year
  Sex: Female

DRUGS (5)
  1. METHADONE [Suspect]
     Active Substance: METHADONE HYDROCHLORIDE
  2. IBUPROFEN. [Suspect]
     Active Substance: IBUPROFEN
  3. OXYCODONE [Suspect]
     Active Substance: OXYCODONE
  4. METOPROLOL. [Suspect]
     Active Substance: METOPROLOL
  5. PARACETAMOL [Suspect]
     Active Substance: ACETAMINOPHEN
     Route: 048

REACTIONS (2)
  - Completed suicide [Fatal]
  - Toxicity to various agents [Fatal]
